FAERS Safety Report 18338918 (Version 1)
Quarter: 2020Q4

REPORT INFORMATION
  Report Type: Spontaneous
  Country: JP (occurrence: JP)
  Receive Date: 20201002
  Receipt Date: 20201002
  Transmission Date: 20210113
  Serious: Yes (Other)
  Sender: FDA-Public Use
  Company Number: JP-PFIZER INC-2020376503

PATIENT
  Age: 50 Year
  Sex: Female

DRUGS (1)
  1. PACLITAXEL. [Suspect]
     Active Substance: PACLITAXEL
     Indication: BREAST CANCER FEMALE
     Dosage: 80 MG/M2, CYCLIC (3-WEEK ADMINISTRATION FOLLOWED BY 1-WEEK WITHDRAWAL)
     Dates: start: 201903

REACTIONS (1)
  - Intracranial tumour haemorrhage [Recovering/Resolving]
